FAERS Safety Report 10306051 (Version 1)
Quarter: 2014Q3

REPORT INFORMATION
  Report Type: Spontaneous
  Country: US (occurrence: None)
  Receive Date: 20140714
  Receipt Date: 20140714
  Transmission Date: 20150326
  Serious: Yes (Life-Threatening, Disabling, Other)
  Sender: FDA-Public Use
  Company Number: None

PATIENT
  Age: 36 Year
  Sex: Female
  Weight: 72.58 kg

DRUGS (1)
  1. COPAXONE [Suspect]
     Active Substance: GLATIRAMER ACETATE
     Indication: PROGRESSIVE MULTIPLE SCLEROSIS
     Dosage: 1 INJ DAILY ONCE DAILY GIVEN INTO/UNDER THE SKIN
     Route: 058
     Dates: start: 20110401, end: 20131015

REACTIONS (1)
  - Hepatitis C [None]

NARRATIVE: CASE EVENT DATE: 20130701
